FAERS Safety Report 5689889-6 (Version None)
Quarter: 2008Q1

REPORT INFORMATION
  Report Type: 
  Country: None (occurrence: None)
  Receive Date: 20080331
  Receipt Date: 20080331
  Transmission Date: 20080703
  Serious: No
  Sender: FDA-Public Use
  Company Number: None

PATIENT
  Age: 62 Year
  Sex: Male
  Weight: 66 kg

DRUGS (2)
  1. VARENICLINE [Suspect]
     Indication: SMOKING CESSATION THERAPY
     Dosage: 1MG BID PO
     Route: 048
     Dates: start: 20071023
  2. VARENICLINE [Suspect]
     Indication: TOBACCO USER
     Dosage: 1MG BID PO
     Route: 048
     Dates: start: 20071023

REACTIONS (1)
  - CONSTIPATION [None]
